FAERS Safety Report 11616952 (Version 1)
Quarter: 2015Q4

REPORT INFORMATION
  Report Type: Spontaneous
  Country: US (occurrence: US)
  Receive Date: 20151009
  Receipt Date: 20151009
  Transmission Date: 20160304
  Serious: No
  Sender: FDA-Public Use
  Company Number: US-PFIZER INC-2015323711

PATIENT
  Sex: Female

DRUGS (1)
  1. ADVIL PM [Suspect]
     Active Substance: DIPHENHYDRAMINE CITRATE\IBUPROFEN
     Dosage: UNK
     Dates: start: 20150924

REACTIONS (5)
  - Insomnia [Unknown]
  - Feeling abnormal [Unknown]
  - Dyspnoea [Unknown]
  - Muscle twitching [Unknown]
  - Tremor [Unknown]

NARRATIVE: CASE EVENT DATE: 201509
